FAERS Safety Report 25988640 (Version 1)
Quarter: 2025Q4

REPORT INFORMATION
  Report Type: Spontaneous
  Country: US (occurrence: US)
  Receive Date: 20251103
  Receipt Date: 20251103
  Transmission Date: 20260117
  Serious: No
  Sender: ACADIA PHARMACEUTICALS
  Company Number: US-ACADIA PHARMACEUTICALS INC.-ACA-2025-TRF-011746

PATIENT

DRUGS (2)
  1. DAYBUE [Suspect]
     Active Substance: TROFINETIDE
     Indication: Rett syndrome
     Dosage: UNK
     Route: 065
  2. DAYBUE [Suspect]
     Active Substance: TROFINETIDE
     Dosage: FULL DOSE
     Route: 065

REACTIONS (1)
  - Diarrhoea [Recovered/Resolved]
